FAERS Safety Report 15699339 (Version 1)
Quarter: 2018Q4

REPORT INFORMATION
  Report Type: Spontaneous
  Country: ES (occurrence: ES)
  Receive Date: 20181207
  Receipt Date: 20181207
  Transmission Date: 20190205
  Serious: Yes (Hospitalization)
  Sender: FDA-Public Use
  Company Number: PHHY2018ES173722

PATIENT
  Age: 91 Year
  Sex: Female

DRUGS (12)
  1. FUROSEMIDA [Concomitant]
     Active Substance: FUROSEMIDE
     Indication: HYPERTENSION
     Dosage: 40 MG, QD (1-0-0 || DOSIS UNIDAD FRECUENCIA: 40 MG-MILIGRAMOS || DOSIS POR TOMA: 40 MG-MILIGRAMOS |)
     Route: 048
     Dates: start: 20150610
  2. PROPRANOLOL [Concomitant]
     Active Substance: PROPRANOLOL HYDROCHLORIDE
     Indication: HYPERTENSION
     Dosage: 10 MG, Q12H (1-0-1 || DOSIS UNIDAD FRECUENCIA: 20 MG-MILIGRAMOS || DOSIS POR TOMA: 10 MG-MILIGRAMOS
     Route: 048
     Dates: start: 20141204
  3. ALOPURINOL [Suspect]
     Active Substance: ALLOPURINOL
     Indication: HYPERURICAEMIA
     Dosage: 50 MG, QD (1/2 CP/24H X 1 MES SEGUIDO DE 1 CP D?A || DOSIS UNIDAD FRECUENCIA: 50 MG-MILIGRAMOS || D)
     Route: 048
     Dates: start: 20150527, end: 20150628
  4. OMEPRAZOL [Concomitant]
     Active Substance: OMEPRAZOLE
     Indication: PROPHYLAXIS
     Dosage: 20 MG, QD (1 CP || DOSIS UNIDAD FRECUENCIA: 20 MG-MILIGRAMOS || DOSIS POR TOMA: 20 MG-MILIGRAMOS ||)
     Route: 048
     Dates: start: 201409
  5. ADIRO [Concomitant]
     Active Substance: ASPIRIN
     Indication: PRODUCT USED FOR UNKNOWN INDICATION
     Dosage: 100 MG, QD (1 CP || DOSIS UNIDAD FRECUENCIA: 100 MG-MILIGRAMOS || DOSIS POR TOMA: 100 MG-MILIGRAMOS)
     Route: 048
     Dates: start: 2009
  6. FORADIL [Concomitant]
     Active Substance: FORMOTEROL FUMARATE
     Indication: CHRONIC OBSTRUCTIVE PULMONARY DISEASE
     Dosage: UNK
     Route: 055
  7. LUMIGAN [Concomitant]
     Active Substance: BIMATOPROST
     Indication: GLAUCOMA
     Dosage: UNK
     Route: 047
  8. RIVOTRIL [Concomitant]
     Active Substance: CLONAZEPAM
     Indication: INSOMNIA
     Dosage: 0.5 MG, QD (0-0-1 || DOSIS UNIDAD FRECUENCIA: 0.5 MG-MILIGRAMOS || DOSIS POR TOMA: 0.5 MG-MILIGRAMO)
     Route: 048
     Dates: start: 201309
  9. PARACETAMOL [Concomitant]
     Active Substance: ACETAMINOPHEN
     Indication: PROPHYLAXIS
     Dosage: UNK (A DEMANDA || UNIDAD DE FRECUENCIA: 0 CUANDO SEA NECESARIO)
     Route: 048
     Dates: start: 2012
  10. TRANKIMAZIN [Concomitant]
     Active Substance: ALPRAZOLAM
     Indication: INSOMNIA
     Dosage: 0.5 MG, Q12H (1-0-1 || DOSIS UNIDAD FRECUENCIA: 1 MG-MILIGRAMOS || DOSIS POR TOMA: 0.5 MG-MILIGRAMO)
     Route: 048
     Dates: start: 201309
  11. NOLOTIL [METAMIZOLE MAGNESIUM] [Concomitant]
     Active Substance: METAMIZOLE MAGNESIUM
     Indication: PAIN
     Dosage: UNK (A DEMANDA || UNIDAD DE FRECUENCIA: 0 CUANDO SEA NECESARIO)
     Route: 048
     Dates: start: 201406
  12. MIFLONIDE [Concomitant]
     Active Substance: BUDESONIDE
     Indication: CHRONIC OBSTRUCTIVE PULMONARY DISEASE
     Dosage: 400 UG, Q12H (1-0-1 || DOSIS UNIDAD FRECUENCIA: 800 MICROG-MICROGRAMOS || DOSIS POR TOMA: 400 MICRO)
     Route: 055
     Dates: start: 201412

REACTIONS (1)
  - Drug reaction with eosinophilia and systemic symptoms [Recovered/Resolved]

NARRATIVE: CASE EVENT DATE: 20150627
